FAERS Safety Report 9791838 (Version 7)
Quarter: 2014Q4

REPORT INFORMATION
  Report Type: Report from Study
  Country: FI (occurrence: FI)
  Receive Date: 20140102
  Receipt Date: 20141219
  Transmission Date: 20150529
  Serious: Yes (Hospitalization, Other)
  Sender: FDA-Public Use
  Company Number: PHHY2013FI134008

PATIENT
  Age: 15 Year
  Sex: Male

DRUGS (21)
  1. LEPONEX [Suspect]
     Active Substance: CLOZAPINE
     Dosage: 150 MG, QD
     Route: 065
  2. MINISUN [Concomitant]
     Indication: PRODUCT USED FOR UNKNOWN INDICATION
     Dosage: 20 UG
     Route: 065
  3. LEPONEX [Suspect]
     Active Substance: CLOZAPINE
     Indication: SCHIZOPHRENIA
     Dosage: UNK
     Route: 065
     Dates: start: 20131029
  4. ANKSILON [Concomitant]
     Dosage: 15 MG, DAILY
     Route: 065
     Dates: start: 20140129, end: 20140205
  5. ANKSILON [Concomitant]
     Dosage: 10 MG, DAILY
     Route: 065
     Dates: start: 20140206, end: 20140217
  6. ANKSILON [Concomitant]
     Indication: PRODUCT USED FOR UNKNOWN INDICATION
     Dosage: 10 MG, DAILY
     Route: 065
     Dates: start: 20131125, end: 20131210
  7. SOLIAN [Concomitant]
     Active Substance: AMISULPRIDE
     Dosage: 600 MG PER DAY
     Route: 065
     Dates: start: 20131121, end: 20131218
  8. SOLIAN [Concomitant]
     Active Substance: AMISULPRIDE
     Dosage: 400 MG, DAILY
     Route: 065
     Dates: start: 20131219
  9. AKINETON [Concomitant]
     Active Substance: BIPERIDEN HYDROCHLORIDE
     Dosage: 2 MG
     Route: 065
     Dates: start: 20131022, end: 20131218
  10. ANKSILON [Concomitant]
     Dosage: 20 MG, DAILY
     Route: 065
     Dates: start: 20131211, end: 20140128
  11. ANKSILON [Concomitant]
     Dosage: 5MG, DAILY
     Route: 065
     Dates: start: 20140218, end: 20140224
  12. LEPONEX [Suspect]
     Active Substance: CLOZAPINE
     Dosage: 200 MG, ONCE DAILY
     Route: 065
     Dates: start: 20140304, end: 20141210
  13. SOLIAN [Concomitant]
     Active Substance: AMISULPRIDE
     Dosage: 800 MG PER DAY
     Route: 065
     Dates: start: 20131022, end: 20131120
  14. OLANZAPINE. [Concomitant]
     Active Substance: OLANZAPINE
     Indication: PRODUCT USED FOR UNKNOWN INDICATION
     Dosage: 5 MG, QD
     Route: 065
     Dates: start: 20141124
  15. LEPONEX [Suspect]
     Active Substance: CLOZAPINE
     Dosage: 50 MG, QD
     Route: 065
  16. SOLIAN [Concomitant]
     Active Substance: AMISULPRIDE
     Indication: SCHIZOPHRENIA
     Dosage: 400 MG, QD
     Route: 065
     Dates: start: 20130916, end: 20130930
  17. SOLIAN [Concomitant]
     Active Substance: AMISULPRIDE
     Dosage: 800 MG PER DAY
     Route: 065
     Dates: start: 20131001, end: 20131007
  18. SOLIAN [Concomitant]
     Active Substance: AMISULPRIDE
     Dosage: 1200 MG, DAILY
     Route: 065
     Dates: start: 20131008, end: 20131021
  19. IPSATOL [Concomitant]
     Indication: EXTRAPYRAMIDAL DISORDER
     Dosage: UNK
     Route: 065
  20. AKINETON [Concomitant]
     Active Substance: BIPERIDEN HYDROCHLORIDE
     Indication: SCHIZOPHRENIA
     Dosage: 1 MG
     Route: 065
     Dates: end: 20131021
  21. MELATONIN [Concomitant]
     Active Substance: MELATONIN
     Indication: PRODUCT USED FOR UNKNOWN INDICATION
     Dosage: 3 MG, IN EVENING
     Route: 065

REACTIONS (27)
  - Urinary tract infection [Not Recovered/Not Resolved]
  - Blood pressure increased [Not Recovered/Not Resolved]
  - Heart rate increased [Recovered/Resolved]
  - Pollakiuria [Not Recovered/Not Resolved]
  - Metabolic syndrome [Unknown]
  - Body mass index increased [Recovering/Resolving]
  - Dysuria [Not Recovered/Not Resolved]
  - Neutrophil count increased [Recovered/Resolved]
  - International normalised ratio decreased [Not Recovered/Not Resolved]
  - Drug administered to patient of inappropriate age [Unknown]
  - Alanine aminotransferase increased [Not Recovered/Not Resolved]
  - Pyelonephritis [Recovered/Resolved]
  - Leukocytosis [Recovered/Resolved]
  - Blood uric acid increased [Not Recovered/Not Resolved]
  - Gamma-glutamyltransferase increased [Not Recovered/Not Resolved]
  - Weight increased [Recovering/Resolving]
  - Anxiety [Recovering/Resolving]
  - Constipation [Not Recovered/Not Resolved]
  - Hepatic steatosis [Unknown]
  - Mental disorder [Unknown]
  - Neutrophil count decreased [Recovered/Resolved]
  - Increased appetite [Unknown]
  - Gastrointestinal sounds abnormal [Unknown]
  - Glycosylated haemoglobin increased [Not Recovered/Not Resolved]
  - Off label use [Unknown]
  - Lipids increased [Unknown]
  - Aspartate aminotransferase increased [Recovered/Resolved]

NARRATIVE: CASE EVENT DATE: 20131029
